FAERS Safety Report 13272614 (Version 1)
Quarter: 2017Q1

REPORT INFORMATION
  Report Type: Spontaneous
  Country: US (occurrence: US)
  Receive Date: 20170226
  Receipt Date: 20170226
  Transmission Date: 20170428
  Serious: No
  Sender: FDA-Public Use
  Company Number: None

PATIENT
  Age: 65 Year
  Sex: Female
  Weight: 49.5 kg

DRUGS (3)
  1. LAMOTROGINE [Suspect]
     Active Substance: LAMOTRIGINE
     Indication: SEIZURE
  2. NIACIN. [Concomitant]
     Active Substance: NIACIN
  3. VITAMIN D [Concomitant]
     Active Substance: CHOLECALCIFEROL

REACTIONS (10)
  - Heart rate increased [None]
  - Drug intolerance [None]
  - Dizziness [None]
  - Muscle spasms [None]
  - Malaise [None]
  - Nausea [None]
  - Muscle tightness [None]
  - Chest discomfort [None]
  - Tinnitus [None]
  - Anxiety [None]
